FAERS Safety Report 8837841 (Version 1)
Quarter: 2012Q4

REPORT INFORMATION
  Report Type: 
  Country: US (occurrence: US)
  Receive Date: 20121012
  Receipt Date: 20121012
  Transmission Date: 20130627
  Serious: Yes (Hospitalization)
  Sender: FDA-Public Use
  Company Number: US-ROCHE-1139765

PATIENT
  Sex: Female

DRUGS (1)
  1. PROTROPIN [Suspect]
     Indication: DWARFISM
     Route: 065

REACTIONS (1)
  - Cardiac disorder [Unknown]
